FAERS Safety Report 16489218 (Version 1)
Quarter: 2019Q2

REPORT INFORMATION
  Report Type: Spontaneous
  Country: US (occurrence: US)
  Receive Date: 20190628
  Receipt Date: 20190628
  Transmission Date: 20190711
  Serious: No
  Sender: FDA-Public Use
  Company Number: US-ACCORD-122587

PATIENT
  Sex: Female

DRUGS (3)
  1. CLONAZEPAM ACTAVIS [Suspect]
     Active Substance: CLONAZEPAM
     Indication: ANXIETY
     Dosage: SOMETIMES 3 TABLETS DAILY
     Dates: start: 2017
  2. CLONAZEPAM SOLCO [Suspect]
     Active Substance: CLONAZEPAM
     Indication: ANXIETY
     Dates: start: 2017
  3. CLONAZEPAM ACCORD [Suspect]
     Active Substance: CLONAZEPAM
     Indication: ANXIETY
     Dosage: STRENGTH: 0.5 MG
     Dates: start: 2017

REACTIONS (4)
  - Off label use [Unknown]
  - Drug ineffective [Unknown]
  - Product substitution issue [Unknown]
  - Somnolence [Unknown]

NARRATIVE: CASE EVENT DATE: 2017
